FAERS Safety Report 20090847 (Version 1)
Quarter: 2021Q4

REPORT INFORMATION
  Report Type: Spontaneous
  Country: US (occurrence: None)
  Receive Date: 20211119
  Receipt Date: 20211119
  Transmission Date: 20220303
  Serious: Yes (Death, Life-Threatening, Hospitalization, Other)
  Sender: FDA-Public Use
  Company Number: None

PATIENT
  Age: 61 Year
  Sex: Female
  Weight: 80.74 kg

DRUGS (1)
  1. ENOXAPARIN [Suspect]
     Active Substance: ENOXAPARIN
     Indication: COVID-19
     Dosage: FREQUENCY : TWICE A DAY;?
     Route: 058
     Dates: start: 20211005, end: 20211024

REACTIONS (6)
  - Haemodynamic instability [None]
  - Heparin-induced thrombocytopenia [None]
  - Blood creatinine increased [None]
  - Acute respiratory failure [None]
  - COVID-19 [None]
  - Death [None]

NARRATIVE: CASE EVENT DATE: 20211027
